FAERS Safety Report 8904393 (Version 2)
Quarter: 2013Q2

REPORT INFORMATION
  Report Type: Spontaneous
  Country: ES (occurrence: ES)
  Receive Date: 20121113
  Receipt Date: 20130610
  Transmission Date: 20140414
  Serious: Yes (Other)
  Sender: FDA-Public Use
  Company Number: ES-ASTELLAS-2012US010915

PATIENT
  Sex: Male

DRUGS (2)
  1. AMBISOME [Suspect]
     Indication: EVIDENCE BASED TREATMENT
     Dosage: 3 MG/KG, UNKNOWN/D
     Route: 042
  2. CHEMOTHERAPEUTIC AGENTS [Concomitant]
     Indication: LEUKAEMIA
     Dosage: UNK
     Route: 065

REACTIONS (2)
  - Burning sensation [Recovered/Resolved]
  - Back pain [Recovered/Resolved]
